FAERS Safety Report 4369218-0 (Version None)
Quarter: 2004Q2

REPORT INFORMATION
  Report Type: 
  Country: None (occurrence: None)
  Receive Date: 20040603
  Receipt Date: 20031002
  Transmission Date: 20050107
  Serious: No
  Sender: FDA-Public Use
  Company Number: US-GLAXOSMITHKLINE-A0428400A

PATIENT
  Age: 66 Year
  Sex: Male
  Weight: 91.8 kg

DRUGS (8)
  1. AUGMENTIN [Suspect]
     Indication: ACUTE SINUSITIS
     Route: 048
     Dates: start: 20031001
  2. VIAGRA [Concomitant]
     Indication: ERECTILE DYSFUNCTION
     Route: 048
  3. FLOMAX [Concomitant]
     Dosage: .4MG PER DAY
     Route: 048
  4. HYDROCHLOROTHIAZIDE [Concomitant]
     Indication: HYPERTENSION
     Dosage: 12.5MG PER DAY
     Route: 048
     Dates: start: 20011101
  5. PRAVASTATIN [Concomitant]
     Dosage: 40MG AT NIGHT
     Route: 048
     Dates: start: 20001101
  6. FLONASE [Concomitant]
     Route: 045
     Dates: start: 19990901
  7. CLARITIN [Concomitant]
     Dosage: 10MG AS REQUIRED
     Route: 048
  8. TESTOSTERONE [Concomitant]
     Dosage: 8U UNKNOWN
     Route: 042

REACTIONS (1)
  - POLLAKIURIA [None]
